FAERS Safety Report 13823450 (Version 1)
Quarter: 2017Q3

REPORT INFORMATION
  Report Type: Spontaneous
  Country: US (occurrence: US)
  Receive Date: 20170802
  Receipt Date: 20170802
  Transmission Date: 20171127
  Serious: No
  Sender: FDA-Public Use
  Company Number: US-BIOGEN-2017BI00438093

PATIENT
  Sex: Female

DRUGS (1)
  1. ZINBRYTA [Suspect]
     Active Substance: DACLIZUMAB
     Indication: MULTIPLE SCLEROSIS
     Route: 065
     Dates: start: 20170525

REACTIONS (5)
  - Upper respiratory tract infection [Unknown]
  - Hypokinesia [Unknown]
  - Chromaturia [Unknown]
  - Sinusitis [Unknown]
  - Vomiting [Unknown]
